FAERS Safety Report 18755369 (Version 1)
Quarter: 2021Q1

REPORT INFORMATION
  Report Type: Other
  Country: FR (occurrence: FR)
  Receive Date: 20210119
  Receipt Date: 20210119
  Transmission Date: 20210419
  Serious: Yes (Hospitalization)
  Sender: FDA-Public Use
  Company Number: FR-CADILA HEALTHCARE LIMITED-FR-ZYDUS-061099

PATIENT

DRUGS (4)
  1. PAROXETINE. [Suspect]
     Active Substance: PAROXETINE
     Indication: DEPRESSION
     Dosage: 40 MILLIGRAM
     Route: 048
     Dates: start: 20200821, end: 20201018
  2. PRAZEPAM [Suspect]
     Active Substance: PRAZEPAM
     Indication: PSYCHOTIC DISORDER
     Dosage: 20 MILLIGRAM
     Route: 048
     Dates: start: 20200821, end: 20201018
  3. CLOZAPINE. [Suspect]
     Active Substance: CLOZAPINE
     Indication: PSYCHOTIC DISORDER
     Route: 048
     Dates: start: 20200831, end: 20201018
  4. LEPTICUR [Concomitant]
     Active Substance: TROPATEPINE HYDROCHLORIDE
     Indication: EXTRAPYRAMIDAL DISORDER
     Dosage: 1 DOSAGE FORM
     Route: 048

REACTIONS (1)
  - Respiratory failure [Recovered/Resolved]

NARRATIVE: CASE EVENT DATE: 20201018
